FAERS Safety Report 17030104 (Version 1)
Quarter: 2019Q4

REPORT INFORMATION
  Report Type: Spontaneous
  Country: US (occurrence: US)
  Receive Date: 20191114
  Receipt Date: 20191114
  Transmission Date: 20200122
  Serious: No
  Sender: FDA-Public Use
  Company Number: US-BRISTOL-MYERS SQUIBB COMPANY-BMS-2019-109853

PATIENT
  Sex: Female
  Weight: 54.43 kg

DRUGS (1)
  1. ORENCIA [Suspect]
     Active Substance: ABATACEPT
     Indication: RHEUMATOID ARTHRITIS
     Dosage: 125 MILLIGRAM WEDNESDAY
     Route: 058

REACTIONS (4)
  - Syringe issue [Unknown]
  - Pain [Unknown]
  - Incontinence [Unknown]
  - Hypoacusis [Unknown]
